FAERS Safety Report 18896260 (Version 1)
Quarter: 2021Q1

REPORT INFORMATION
  Report Type: Spontaneous
  Country: US (occurrence: US)
  Receive Date: 20210216
  Receipt Date: 20210216
  Transmission Date: 20210420
  Serious: No
  Sender: FDA-Public Use
  Company Number: US-AMGEN-USASP2021024475

PATIENT
  Age: 74 Year
  Sex: Female

DRUGS (2)
  1. MVASI [Suspect]
     Active Substance: BEVACIZUMAB-AWWB
     Indication: PRODUCT USED FOR UNKNOWN INDICATION
     Dosage: UNK
     Route: 065
     Dates: start: 20200626
  2. MVASI [Suspect]
     Active Substance: BEVACIZUMAB-AWWB
     Dosage: 480 MILLIGRAM
     Route: 065
     Dates: start: 20210115

REACTIONS (1)
  - Disease progression [Unknown]
